FAERS Safety Report 8595897-8 (Version None)
Quarter: 2012Q3

REPORT INFORMATION
  Report Type: 
  Country: None (occurrence: None)
  Receive Date: 20120815
  Receipt Date: 19900130
  Transmission Date: 20120928
  Serious: Yes (Other)
  Sender: FDA-Public Use
  Company Number: US-ROCHE-1099837

PATIENT
  Sex: Female

DRUGS (6)
  1. NITROGLYCERIN [Concomitant]
     Indication: CHEST PAIN
  2. HEPARIN [Concomitant]
     Dosage: 4000 UNITS
     Route: 040
  3. NITROGLYCERIN [Concomitant]
  4. NITROGLYCERIN [Concomitant]
  5. ACTIVASE [Suspect]
     Indication: ACUTE MYOCARDIAL INFARCTION
     Route: 040
     Dates: start: 19900112
  6. DEXTROSE 5% IN WATER [Concomitant]

REACTIONS (5)
  - VOMITING [None]
  - ELECTROCARDIOGRAM ST SEGMENT DEPRESSION [None]
  - RHYTHM IDIOVENTRICULAR [None]
  - CHEST PAIN [None]
  - BLOOD PRESSURE DECREASED [None]
